FAERS Safety Report 10536975 (Version 1)
Quarter: 2014Q4

REPORT INFORMATION
  Report Type: Spontaneous
  Country: US (occurrence: US)
  Receive Date: 20141022
  Receipt Date: 20141022
  Transmission Date: 20150529
  Serious: Yes (Other)
  Sender: FDA-Public Use
  Company Number: US-ASTRAZENECA-2014SE79014

PATIENT
  Age: 76 Year
  Sex: Female
  Weight: 88.5 kg

DRUGS (18)
  1. NEXIUM [Suspect]
     Active Substance: ESOMEPRAZOLE MAGNESIUM
     Indication: HAEMORRHAGE
     Route: 048
     Dates: start: 2004
  2. VITAMIN B12 [Concomitant]
     Active Substance: CYANOCOBALAMIN
     Indication: SUPPLEMENTATION THERAPY
  3. DILTIAZEM [Concomitant]
     Active Substance: DILTIAZEM
     Indication: CARDIAC DISORDER
     Dates: start: 2013
  4. QUESTRAN PREVALITE [Concomitant]
     Indication: DIARRHOEA
  5. DUONEBS [Concomitant]
     Indication: LUNG DISORDER
     Dosage: AS REQUIRED
     Dates: start: 1994
  6. FLONASE [Concomitant]
     Active Substance: FLUTICASONE PROPIONATE
     Indication: SINUS DISORDER
  7. TOPROL XL [Suspect]
     Active Substance: METOPROLOL SUCCINATE
     Indication: LUNG DISORDER
     Route: 048
  8. CALCIUM [Concomitant]
     Active Substance: CALCIUM
  9. NEXIUM [Suspect]
     Active Substance: ESOMEPRAZOLE MAGNESIUM
     Indication: GASTROOESOPHAGEAL REFLUX DISEASE
     Route: 048
     Dates: start: 2004
  10. IRON SUPPLEMENT 65 FE [Concomitant]
     Indication: SUPPLEMENTATION THERAPY
  11. QUESTRAN PREVALITE [Concomitant]
     Indication: BLOOD CHOLESTEROL ABNORMAL
  12. TOPROL XL [Suspect]
     Active Substance: METOPROLOL SUCCINATE
     Indication: CARDIAC DISORDER
     Route: 048
  13. KLOR CON [Concomitant]
     Indication: SUPPLEMENTATION THERAPY
  14. DILTIAZEM [Concomitant]
     Active Substance: DILTIAZEM
     Indication: LUNG DISORDER
     Dates: start: 2013
  15. ELIQUIS [Concomitant]
     Active Substance: APIXABAN
     Dates: start: 2013
  16. PAXIL [Concomitant]
     Active Substance: PAROXETINE HYDROCHLORIDE
     Indication: DEPRESSION
  17. SYMBICORT [Suspect]
     Active Substance: BUDESONIDE\FORMOTEROL FUMARATE DIHYDRATE
     Indication: CHRONIC OBSTRUCTIVE PULMONARY DISEASE
     Dosage: 160/4.5 MCG, 2 PUFFS,DAILY
     Route: 055
     Dates: start: 2013
  18. MOBIC [Concomitant]
     Active Substance: MELOXICAM
     Indication: ARTHRITIS
     Dosage: DAILY

REACTIONS (12)
  - Adverse event [Unknown]
  - Blood cholesterol [Unknown]
  - Atrial fibrillation [Unknown]
  - Gastrooesophageal reflux disease [Unknown]
  - Arthritis [Unknown]
  - Constipation [Unknown]
  - Product use issue [Unknown]
  - Hiatus hernia [Unknown]
  - Chronic obstructive pulmonary disease [Unknown]
  - Diarrhoea [Unknown]
  - Off label use [Unknown]
  - Cardiac failure congestive [Unknown]

NARRATIVE: CASE EVENT DATE: 2004
